FAERS Safety Report 14930440 (Version 1)
Quarter: 2018Q2

REPORT INFORMATION
  Report Type: Spontaneous
  Country: US (occurrence: US)
  Receive Date: 20180504
  Receipt Date: 20180504
  Transmission Date: 20180711
  Serious: Yes (Other)
  Sender: FDA-Public Use
  Company Number: None

PATIENT
  Age: 13 Year
  Sex: Male
  Weight: 44.45 kg

DRUGS (2)
  1. DEXMETHYLPHENIDATE 25MG [Suspect]
     Active Substance: DEXMETHYLPHENIDATE HYDROCHLORIDE
  2. DEXMETHYLPHENIDATE 25MG [Suspect]
     Active Substance: DEXMETHYLPHENIDATE HYDROCHLORIDE
     Indication: ATTENTION DEFICIT/HYPERACTIVITY DISORDER
     Dosage: 25MG QAM PO
     Route: 048
     Dates: start: 20171116, end: 20180420

REACTIONS (4)
  - Dizziness [None]
  - Headache [None]
  - Hypotension [None]
  - Nausea [None]

NARRATIVE: CASE EVENT DATE: 20180420
